FAERS Safety Report 4423413-0 (Version None)
Quarter: 2004Q3

REPORT INFORMATION
  Report Type: 
  Country: None (occurrence: None)
  Receive Date: 20040806
  Receipt Date: 20040727
  Transmission Date: 20050211
  Serious: No
  Sender: FDA-Public Use
  Company Number: 2004SE04266

PATIENT
  Age: 83 Year
  Sex: Male

DRUGS (3)
  1. AMIAS [Suspect]
     Indication: HYPERTENSION
     Dosage: 16 MG DAILY PO
     Route: 048
  2. ALLOPURINOL [Suspect]
     Indication: GOUT
     Dosage: 300 MG DAILY PO
     Route: 048
     Dates: end: 20040615
  3. ACETAMINOPHEN [Concomitant]

REACTIONS (1)
  - VISUAL DISTURBANCE [None]
